FAERS Safety Report 10215750 (Version 1)
Quarter: 2014Q2

REPORT INFORMATION
  Report Type: Spontaneous
  Country: US (occurrence: None)
  Receive Date: 20140602
  Receipt Date: 20140602
  Transmission Date: 20141212
  Serious: Yes (Hospitalization)
  Sender: FDA-Public Use
  Company Number: LIT-14-0024-W

PATIENT
  Age: 59 Year
  Sex: Female

DRUGS (1)
  1. BUPROPION [Suspect]
     Indication: MAJOR DEPRESSION
     Route: 048
     Dates: start: 20110707, end: 20110711

REACTIONS (2)
  - Dysphemia [None]
  - Somatisation disorder [None]
